FAERS Safety Report 4927064-0 (Version None)
Quarter: 2006Q1

REPORT INFORMATION
  Report Type: 
  Country: None (occurrence: None)
  Receive Date: 20060228
  Receipt Date: 20051013
  Transmission Date: 20060701
  Serious: No
  Sender: FDA-Public Use
  Company Number: US-GLAXOSMITHKLINE-A0578321A

PATIENT
  Sex: Female

DRUGS (4)
  1. LAMICTAL [Suspect]
     Indication: DRUG USE FOR UNKNOWN INDICATION
     Route: 048
  2. NYQUIL [Suspect]
     Indication: DRUG USE FOR UNKNOWN INDICATION
     Route: 048
  3. LITHIUM [Concomitant]
     Route: 065
  4. STRATTERA [Concomitant]
     Route: 065

REACTIONS (1)
  - FEELING ABNORMAL [None]
